FAERS Safety Report 6495433-6 (Version None)
Quarter: 2009Q4

REPORT INFORMATION
  Report Type: 
  Country: None (occurrence: None)
  Receive Date: 20091214
  Receipt Date: 20090622
  Transmission Date: 20100525
  Serious: No
  Sender: FDA-Public Use
  Company Number: US-BRISTOL-MYERS SQUIBB COMPANY-14674980

PATIENT
  Age: 4 Decade
  Sex: Female

DRUGS (4)
  1. ABILIFY [Suspect]
     Indication: BIPOLAR DISORDER
  2. LAMICTAL [Suspect]
     Indication: BIPOLAR DISORDER
  3. DEPAKOTE [Suspect]
     Indication: BIPOLAR DISORDER
  4. KLONOPIN [Suspect]
     Indication: BIPOLAR DISORDER

REACTIONS (1)
  - PARKINSONISM [None]
